FAERS Safety Report 6408101-3 (Version None)
Quarter: 2009Q4

REPORT INFORMATION
  Report Type: 
  Country: None (occurrence: None)
  Receive Date: 20091016
  Receipt Date: 20091006
  Transmission Date: 20100525
  Serious: Yes (Other)
  Sender: FDA-Public Use
  Company Number: GXKR2009GB11027

PATIENT
  Age: 75 Year
  Sex: Female

DRUGS (2)
  1. ALENORONIC ACID (NGX) (ALENDRONAC ACID) TABLET [Suspect]
     Indication: POLYMYALGIA RHEUMATICA
     Dosage: ORAL
     Route: 048
     Dates: start: 20030101
  2. GLUCOCORTICOIDS (NO INGREDIENTS/SUBSTANCES) [Concomitant]

REACTIONS (3)
  - FEMUR FRACTURE [None]
  - FRACTURE DELAYED UNION [None]
  - PAIN [None]
